FAERS Safety Report 10093172 (Version 1)
Quarter: 2014Q2

REPORT INFORMATION
  Report Type: Spontaneous
  Country: US (occurrence: US)
  Receive Date: 20140421
  Receipt Date: 20140421
  Transmission Date: 20141212
  Serious: No
  Sender: FDA-Public Use
  Company Number: US-SA-2013SA118210

PATIENT
  Sex: Male

DRUGS (2)
  1. ALLEGRA [Suspect]
     Route: 065
     Dates: start: 20131113
  2. ALLEGRA [Suspect]
     Route: 065
     Dates: start: 20131114

REACTIONS (1)
  - Inappropriate schedule of drug administration [Unknown]
